FAERS Safety Report 8539579-7 (Version None)
Quarter: 2012Q3

REPORT INFORMATION
  Report Type: 
  Country: None (occurrence: None)
  Receive Date: 20120726
  Receipt Date: 20120713
  Transmission Date: 20120928
  Serious: No
  Sender: FDA-Public Use
  Company Number: AU-ELI_LILLY_AND_COMPANY-AU201207004425

PATIENT
  Age: 48 Year
  Sex: Male

DRUGS (1)
  1. CYMBALTA [Suspect]
     Indication: PAIN
     Dosage: 60 MG, UNKNOWN
     Dates: end: 20110701

REACTIONS (8)
  - HEPATIC LESION [None]
  - MOOD SWINGS [None]
  - HYPERTENSION [None]
  - LIVER FUNCTION TEST ABNORMAL [None]
  - WEIGHT INCREASED [None]
  - NIGHT SWEATS [None]
  - ALOPECIA [None]
  - BRUXISM [None]
